FAERS Safety Report 6186740-5 (Version None)
Quarter: 2009Q2

REPORT INFORMATION
  Report Type: 
  Country: None (occurrence: None)
  Receive Date: 20090508
  Receipt Date: 20090508
  Transmission Date: 20091009
  Serious: Yes (Hospitalization)
  Sender: FDA-Public Use
  Company Number: None

PATIENT
  Sex: Male
  Weight: 73 kg

DRUGS (3)
  1. CISPLATIN [Suspect]
     Dosage: 113 MG
  2. ERBITUX [Suspect]
     Dosage: 1686 MG
  3. CAMPTOSAR [Suspect]
     Dosage: 246 MG

REACTIONS (6)
  - ABDOMINAL PAIN [None]
  - DEHYDRATION [None]
  - DIARRHOEA [None]
  - FLATULENCE [None]
  - GASTROINTESTINAL NECROSIS [None]
  - MALAISE [None]
